FAERS Safety Report 9186600 (Version 1)
Quarter: 2013Q1

REPORT INFORMATION
  Report Type: Spontaneous
  Country: TR (occurrence: TR)
  Receive Date: 20130325
  Receipt Date: 20130325
  Transmission Date: 20140127
  Serious: Yes (Hospitalization)
  Sender: FDA-Public Use
  Company Number: TR-VERTEX PHARMACEUTICALS INC.-2013-004012

PATIENT
  Age: 54 Year
  Sex: Female
  Weight: 27.22 kg

DRUGS (3)
  1. INCIVO [Suspect]
     Indication: CHRONIC HEPATITIS C
     Dosage: TABLET 750 MG, TID
     Route: 048
     Dates: start: 20130220, end: 20130319
  2. PEGINTERFERON ALFA [Suspect]
     Indication: CHRONIC HEPATITIS C
     Dosage: 180 ?G, QW
     Route: 058
     Dates: start: 20130220, end: 20130319
  3. RIBAVIRIN [Suspect]
     Indication: CHRONIC HEPATITIS C
     Dosage: 1000 MG, QD
     Route: 048
     Dates: start: 20130220, end: 20130319

REACTIONS (3)
  - Lower gastrointestinal haemorrhage [Recovered/Resolved]
  - Asthenia [Recovered/Resolved]
  - Anaemia [Recovered/Resolved]
